FAERS Safety Report 7807442-2 (Version None)
Quarter: 2011Q4

REPORT INFORMATION
  Report Type: 
  Country: None (occurrence: None)
  Receive Date: 20111011
  Receipt Date: 20110929
  Transmission Date: 20120403
  Serious: Yes (Disabling, Other)
  Sender: FDA-Public Use
  Company Number: PHHY2011BE72745

PATIENT
  Age: 48 Year
  Sex: Male

DRUGS (2)
  1. TEGRETOL-XR [Suspect]
     Indication: GRAND MAL CONVULSION
     Dosage: 200 MG, BID
     Route: 048
  2. NAPROSYN [Interacting]
     Indication: ARTHROPATHY
     Dosage: UNK UKN, UNK
     Dates: start: 20110702, end: 20110705

REACTIONS (2)
  - COMPLEX PARTIAL SEIZURES [None]
  - DRUG INTERACTION [None]
